FAERS Safety Report 5759821-5 (Version None)
Quarter: 2008Q2

REPORT INFORMATION
  Report Type: 
  Country: None (occurrence: None)
  Receive Date: 20080605
  Receipt Date: 20080527
  Transmission Date: 20081010
  Serious: Yes (Other)
  Sender: FDA-Public Use
  Company Number: GB-TEVA-172186ISR

PATIENT
  Age: 73 Year
  Sex: Male

DRUGS (3)
  1. PREDNISOLONE [Suspect]
     Route: 048
     Dates: end: 20070422
  2. ATORVASTATIN [Suspect]
     Route: 048
  3. RIFATER [Suspect]
     Indication: TUBERCULOSIS
     Dosage: 1 DF
     Route: 048
     Dates: end: 20070422

REACTIONS (2)
  - LIVER DISORDER [None]
  - LIVER FUNCTION TEST ABNORMAL [None]
